FAERS Safety Report 13895340 (Version 1)
Quarter: 2017Q3

REPORT INFORMATION
  Report Type: Spontaneous
  Country: US (occurrence: US)
  Receive Date: 20170818
  Receipt Date: 20170818
  Transmission Date: 20171127
  Serious: Yes (Hospitalization)
  Sender: FDA-Public Use
  Company Number: None

PATIENT
  Age: 89 Year
  Sex: Female
  Weight: 59.4 kg

DRUGS (7)
  1. LETROZOL [Concomitant]
     Active Substance: LETROZOLE
  2. IBRANCE [Suspect]
     Active Substance: PALBOCICLIB
     Indication: MALIGNANT LYMPHOID NEOPLASM
     Route: 048
     Dates: start: 20170707, end: 20170817
  3. LASIX [Concomitant]
     Active Substance: FUROSEMIDE
  4. MULTIVITAMINS [Concomitant]
     Active Substance: VITAMINS
  5. LISINOPRIL. [Concomitant]
     Active Substance: LISINOPRIL
  6. OCUVITE EXTRA [Concomitant]
  7. PREDNISONE. [Concomitant]
     Active Substance: PREDNISONE

REACTIONS (4)
  - Cardiac failure congestive [None]
  - Urinary tract infection [None]
  - Neutropenia [None]
  - Oedema peripheral [None]

NARRATIVE: CASE EVENT DATE: 20170803
